FAERS Safety Report 15296238 (Version 1)
Quarter: 2018Q4

REPORT INFORMATION
  Report Type: Spontaneous
  Country: ZA (occurrence: ZA)
  Receive Date: 20180820
  Receipt Date: 20180820
  Transmission Date: 20190204
  Serious: Yes (Death, Other)
  Sender: FDA-Public Use
  Company Number: ZA-JNJFOC-20180812050

PATIENT
  Age: 44 Year
  Sex: Male

DRUGS (21)
  1. ETHIONAMIDE [Suspect]
     Active Substance: ETHIONAMIDE
     Indication: TUBERCULOSIS
     Route: 048
     Dates: start: 20180516, end: 20180717
  2. PARA-AMINOSALICYLIC ACID [Suspect]
     Active Substance: AMINOSALICYLIC ACID
     Indication: TUBERCULOSIS
     Route: 048
     Dates: start: 20180524, end: 20180628
  3. TERIZIDONE [Suspect]
     Active Substance: TERIZIDONE
     Indication: TUBERCULOSIS
     Route: 048
     Dates: start: 20180524, end: 20180717
  4. CLOFAZIMINE [Suspect]
     Active Substance: CLOFAZIMINE
     Indication: TUBERCULOSIS
     Route: 048
     Dates: start: 20180516, end: 20180717
  5. EMTRICITABINE [Concomitant]
     Active Substance: EMTRICITABINE
     Route: 065
  6. FLUCONAZOLE. [Concomitant]
     Active Substance: FLUCONAZOLE
     Route: 065
  7. BEDAQUILINE [Suspect]
     Active Substance: BEDAQUILINE
     Indication: TUBERCULOSIS
     Route: 048
     Dates: start: 20180524, end: 20180717
  8. LEVOX [Suspect]
     Active Substance: LEVOFLOXACIN
     Indication: TUBERCULOSIS
     Route: 048
     Dates: start: 20180516, end: 20180717
  9. PYRAZINAMIDE. [Suspect]
     Active Substance: PYRAZINAMIDE
     Indication: TUBERCULOSIS
     Route: 048
     Dates: start: 20180516, end: 20180717
  10. CALCIUM GLUCONATE. [Concomitant]
     Active Substance: CALCIUM GLUCONATE
     Route: 065
  11. ISONIAZID. [Suspect]
     Active Substance: ISONIAZID
     Indication: TUBERCULOSIS
     Route: 048
     Dates: start: 20180516, end: 20180717
  12. NEVIRAPINE. [Concomitant]
     Active Substance: NEVIRAPINE
     Route: 065
  13. MAGNESIUM AMINO ACID CHELATE [Concomitant]
     Active Substance: MAGNESIUM
     Route: 065
  14. VITAMIN B6 [Concomitant]
     Active Substance: PYRIDOXINE HYDROCHLORIDE
     Route: 065
  15. MAYOGEL [Concomitant]
     Indication: ABDOMINAL PAIN
     Route: 065
     Dates: start: 20180627
  16. TENOFOVIR DISOPROXIL [Concomitant]
     Active Substance: TENOFOVIR DISOPROXIL
     Route: 065
  17. LINEZOLID. [Suspect]
     Active Substance: LINEZOLID
     Indication: TUBERCULOSIS
     Route: 048
     Dates: start: 20180524, end: 20180714
  18. OMEPRAZOLE. [Concomitant]
     Active Substance: OMEPRAZOLE
     Route: 065
     Dates: start: 20180614
  19. DELAMANID [Suspect]
     Active Substance: DELAMANID
     Indication: TUBERCULOSIS
     Route: 048
     Dates: start: 20180524, end: 20180717
  20. PYRIDOXINE [Concomitant]
     Active Substance: PYRIDOXINE
     Route: 065
  21. METOCLOPRAMIDE. [Concomitant]
     Active Substance: METOCLOPRAMIDE
     Indication: NAUSEA
     Route: 065
     Dates: start: 20180530

REACTIONS (4)
  - Electrocardiogram QT prolonged [Not Recovered/Not Resolved]
  - Pancytopenia [Fatal]
  - Gastroenteritis [Not Recovered/Not Resolved]
  - Neuropathy peripheral [Not Recovered/Not Resolved]

NARRATIVE: CASE EVENT DATE: 20180628
